FAERS Safety Report 23509746 (Version 12)
Quarter: 2025Q4

REPORT INFORMATION
  Report Type: Report from Study
  Country: BR (occurrence: BR)
  Receive Date: 20240210
  Receipt Date: 20251224
  Transmission Date: 20260117
  Serious: Yes (Hospitalization, Other)
  Sender: NOVARTIS
  Company Number: BR-002147023-NVSC2023BR103480

PATIENT
  Age: 41 Year
  Sex: Female

DRUGS (11)
  1. KISQALI [Suspect]
     Active Substance: RIBOCICLIB SUCCINATE
     Indication: Breast cancer female
     Dosage: UNK
     Route: 065
     Dates: start: 202303
  2. KISQALI [Suspect]
     Active Substance: RIBOCICLIB SUCCINATE
     Indication: Metastases to bone
     Dosage: UNK
     Route: 065
     Dates: start: 20230316
  3. KISQALI [Suspect]
     Active Substance: RIBOCICLIB SUCCINATE
     Indication: Metastases to lung
     Dosage: UNK
     Route: 065
  4. KISQALI [Suspect]
     Active Substance: RIBOCICLIB SUCCINATE
     Indication: Metastasis
     Dosage: 3 DOSAGE FORM, QD (3 TABLETS PER DAY)
     Route: 065
     Dates: start: 20240303
  5. KISQALI [Suspect]
     Active Substance: RIBOCICLIB SUCCINATE
     Dosage: 3 DOSAGE FORM, QD (3 TABLETS PER DAY) STARTED CYCLE FROM 21ST
     Route: 065
  6. KISQALI [Suspect]
     Active Substance: RIBOCICLIB SUCCINATE
     Dosage: 2 DOSAGE FORM
     Route: 065
  7. KISQALI [Suspect]
     Active Substance: RIBOCICLIB SUCCINATE
     Dosage: UNK, BID
     Route: 065
  8. ANASTROZOLE [Suspect]
     Active Substance: ANASTROZOLE
     Indication: Product used for unknown indication
     Dosage: UNK
     Route: 065
     Dates: start: 202303
  9. DIPYRONE [Suspect]
     Active Substance: DIPYRONE
     Indication: Product used for unknown indication
     Dosage: UNK
     Route: 065
  10. LEUPROLIDE ACETATE [Suspect]
     Active Substance: LEUPROLIDE ACETATE
     Indication: Product used for unknown indication
     Dosage: UNK
     Route: 065
  11. BETAMETHASONE [Concomitant]
     Active Substance: BETAMETHASONE
     Indication: Product used for unknown indication
     Dosage: UNK
     Route: 065

REACTIONS (34)
  - Pain [Recovering/Resolving]
  - Dyspnoea [Recovering/Resolving]
  - White blood cell count decreased [Recovered/Resolved]
  - Spinal fracture [Recovering/Resolving]
  - Spinal cord neoplasm [Recovered/Resolved]
  - Spinal cord neoplasm [Unknown]
  - Urticaria [Not Recovered/Not Resolved]
  - Feeling hot [Not Recovered/Not Resolved]
  - Fracture [Unknown]
  - Lung neoplasm [Recovering/Resolving]
  - Fungal infection [Not Recovered/Not Resolved]
  - Decreased immune responsiveness [Unknown]
  - Herpes virus infection [Not Recovered/Not Resolved]
  - Pruritus [Recovered/Resolved]
  - Diarrhoea [Recovered/Resolved]
  - Constipation [Unknown]
  - Platelet count decreased [Unknown]
  - Wound [Not Recovered/Not Resolved]
  - Arthropod bite [Not Recovered/Not Resolved]
  - Skin mass [Unknown]
  - Swelling [Unknown]
  - Full blood count abnormal [Unknown]
  - Menopausal symptoms [Unknown]
  - Adverse drug reaction [Unknown]
  - Platelet count abnormal [Unknown]
  - Fatigue [Unknown]
  - Bone pain [Unknown]
  - Gait disturbance [Unknown]
  - Asthenia [Unknown]
  - White blood cell count abnormal [Unknown]
  - Spinal pain [Unknown]
  - Paraesthesia [Unknown]
  - Inappropriate schedule of product administration [Unknown]
  - Nasopharyngitis [Unknown]

NARRATIVE: CASE EVENT DATE: 20230401
